FAERS Safety Report 24757587 (Version 1)
Quarter: 2024Q4

REPORT INFORMATION
  Report Type: Report from Study
  Country: BR (occurrence: BR)
  Receive Date: 20241220
  Receipt Date: 20241220
  Transmission Date: 20250115
  Serious: Yes (Other)
  Sender: CELLTRION
  Company Number: BR-CELLTRION INC.-2024BR031902

PATIENT

DRUGS (5)
  1. INFLIXIMAB-DYYB [Suspect]
     Active Substance: INFLIXIMAB-DYYB
     Indication: Ankylosing spondylitis
     Dosage: 4 AMPOULES EVERY 8 WEEKS
     Route: 042
     Dates: start: 20221111
  2. INFLIXIMAB-DYYB [Suspect]
     Active Substance: INFLIXIMAB-DYYB
     Dosage: 4 AMPOULES EVERY 8 WEEKS
     Route: 042
     Dates: start: 20241203
  3. PHENOBARBITAL [Concomitant]
     Active Substance: PHENOBARBITAL
     Indication: Seizure
     Dosage: 1 PILL AT NIGHT (START DATE: 8 YEARS)
     Route: 048
  4. VENAFLON [Concomitant]
     Dosage: UNK
     Route: 048
  5. OMEPRAZOLE [Concomitant]
     Active Substance: OMEPRAZOLE
     Indication: Product used for unknown indication
     Dosage: 1 PILL A DAY
     Route: 048

REACTIONS (7)
  - Thyroid cancer [Not Recovered/Not Resolved]
  - Haematemesis [Recovered/Resolved]
  - Somnolence [Recovered/Resolved]
  - Abdominal discomfort [Recovered/Resolved]
  - Influenza [Unknown]
  - Intentional dose omission [Unknown]
  - Therapeutic response shortened [Unknown]

NARRATIVE: CASE EVENT DATE: 20240817
